FAERS Safety Report 7494922-5 (Version None)
Quarter: 2011Q2

REPORT INFORMATION
  Report Type: 
  Country: None (occurrence: None)
  Receive Date: 20110520
  Receipt Date: 20110509
  Transmission Date: 20111010
  Serious: Yes (Hospitalization, Other)
  Sender: FDA-Public Use
  Company Number: US-UCBSA-029353

PATIENT
  Sex: Female
  Weight: 102.06 kg

DRUGS (13)
  1. SYNTHROID [Concomitant]
     Indication: HYPOTHYROIDISM
     Route: 048
  2. BUSPIRONE HCL [Concomitant]
     Indication: DEPRESSION
  3. ANTIVERT [Concomitant]
     Route: 048
  4. METHOTREXATE [Concomitant]
     Indication: RHEUMATOID ARTHRITIS
     Route: 048
     Dates: start: 20090101
  5. CELEBREX [Concomitant]
     Indication: RHEUMATOID ARTHRITIS
     Route: 048
     Dates: start: 20090101
  6. VICODIN [Concomitant]
     Dosage: 5/500 ONE TABLET DAILY
     Route: 048
  7. FOLIC ACID [Concomitant]
     Route: 048
  8. ANTIVERT [Concomitant]
  9. CALCIUM 600MG PLUS VITAMIN D1 [Concomitant]
     Dosage: 600 MG PLUS 1 TABLET DAILY
     Route: 048
  10. METFORMIN HCL [Concomitant]
     Indication: DIABETES MELLITUS
     Route: 048
  11. ESTRADIOL [Concomitant]
     Route: 048
  12. CIMZIA [Suspect]
     Indication: RHEUMATOID ARTHRITIS
     Dosage: 400 MG SPLIT INTO 1 SHOT EVERY 2 WEEKS
     Route: 058
     Dates: start: 20100101, end: 20110301
  13. TRAZODONE HCL [Concomitant]
     Route: 048

REACTIONS (13)
  - METABOLIC ACIDOSIS [None]
  - NEUTROPENIA [None]
  - RENAL FAILURE [None]
  - MICROCYTIC ANAEMIA [None]
  - MALNUTRITION [None]
  - HYPOTENSION [None]
  - THROMBOCYTOPENIA [None]
  - HYPOCALCAEMIA [None]
  - INFLUENZA LIKE ILLNESS [None]
  - ANAEMIA [None]
  - SEPSIS [None]
  - URINARY TRACT INFECTION [None]
  - INFLUENZA [None]
